FAERS Safety Report 20165764 (Version 1)
Quarter: 2021Q4

REPORT INFORMATION
  Report Type: Spontaneous
  Country: US (occurrence: US)
  Receive Date: 20211209
  Receipt Date: 20211209
  Transmission Date: 20220304
  Serious: No
  Sender: FDA-Public Use
  Company Number: US-drreddys-SPO/USA/21/0144441

PATIENT
  Age: 42 Year
  Sex: Female
  Weight: 51.75 kg

DRUGS (1)
  1. BUPRENORPHINE\NALOXONE [Suspect]
     Active Substance: BUPRENORPHINE\NALOXONE
     Indication: Drug dependence
     Dosage: 8MG/2MG
     Route: 060
     Dates: start: 20211113, end: 20211201

REACTIONS (2)
  - Treatment noncompliance [Unknown]
  - Product quality issue [Unknown]
